FAERS Safety Report 16621825 (Version 1)
Quarter: 2019Q3

REPORT INFORMATION
  Report Type: Spontaneous
  Country: US (occurrence: US)
  Receive Date: 20190723
  Receipt Date: 20190723
  Transmission Date: 20191004
  Serious: Yes (Hospitalization)
  Sender: FDA-Public Use
  Company Number: US-OTSUKA-2018_039342

PATIENT
  Age: 72 Year
  Sex: Female

DRUGS (2)
  1. LOSARTAN. [Concomitant]
     Active Substance: LOSARTAN
     Indication: HYPERTENSION
     Dosage: 50 MG, QD
     Route: 065
  2. REXULTI [Suspect]
     Active Substance: BREXPIPRAZOLE
     Indication: PRODUCT USED FOR UNKNOWN INDICATION
     Dosage: 3 MG, QD
     Route: 065
     Dates: start: 201811, end: 20181216

REACTIONS (5)
  - Blood pressure increased [Not Recovered/Not Resolved]
  - Akathisia [Not Recovered/Not Resolved]
  - Incorrect dosage administered [Unknown]
  - Motor dysfunction [Not Recovered/Not Resolved]
  - Heart rate increased [Unknown]

NARRATIVE: CASE EVENT DATE: 201812
